FAERS Safety Report 13506159 (Version 1)
Quarter: 2017Q2

REPORT INFORMATION
  Report Type: Spontaneous
  Country: US (occurrence: US)
  Receive Date: 20170502
  Receipt Date: 20170502
  Transmission Date: 20170830
  Serious: No
  Sender: FDA-Public Use
  Company Number: US-ROCHE-1284889

PATIENT
  Sex: Male

DRUGS (1)
  1. AVASTIN [Suspect]
     Active Substance: BEVACIZUMAB
     Indication: COLORECTAL CANCER METASTATIC
     Route: 042

REACTIONS (7)
  - Dry skin [Not Recovered/Not Resolved]
  - Mass [Unknown]
  - Epistaxis [Not Recovered/Not Resolved]
  - Hypoaesthesia oral [Not Recovered/Not Resolved]
  - Tongue biting [Unknown]
  - Hypoaesthesia teeth [Not Recovered/Not Resolved]
  - Dermatitis acneiform [Not Recovered/Not Resolved]
